FAERS Safety Report 7351403-7 (Version None)
Quarter: 2011Q1

REPORT INFORMATION
  Report Type: 
  Country: None (occurrence: None)
  Receive Date: 20110314
  Receipt Date: 20110310
  Transmission Date: 20110831
  Serious: Yes (Life-Threatening, Hospitalization, Other)
  Sender: FDA-Public Use
  Company Number: PHHO2010IE03795

PATIENT
  Sex: Male
  Weight: 104 kg

DRUGS (16)
  1. BLINDED ALISKIREN [Suspect]
     Dosage: CODE NOT BROKEN
     Route: 048
     Dates: start: 20101215, end: 20110224
  2. BLINDED ENALAPRIL [Suspect]
     Dosage: CODE NOT BROKEN
     Route: 048
     Dates: start: 20101215, end: 20110224
  3. SIMVASTATIN [Concomitant]
  4. BLINDED ENALAPRIL [Suspect]
     Indication: CARDIAC FAILURE
     Dosage: CODE NOT BROKEN
     Route: 048
     Dates: start: 20091209, end: 20100303
  5. ISOSORBIDE DINITRATE [Suspect]
     Dosage: UNK
     Dates: start: 20110224, end: 20110225
  6. ASPIRIN [Concomitant]
  7. DIGOXIN [Concomitant]
  8. QUININE SULFATE [Concomitant]
  9. BLINDED ALISKIREN [Suspect]
     Indication: CARDIAC FAILURE
     Dosage: CODE NOT BROKEN
     Route: 048
     Dates: start: 20091209, end: 20100303
  10. BLINDED NO TREATMENT RECEIVED [Suspect]
     Dosage: CODE NOT BROKEN
     Route: 048
     Dates: start: 20101215, end: 20110224
  11. ALISKIREN [Suspect]
     Indication: CARDIAC FAILURE
  12. BLINDED NO TREATMENT RECEIVED [Suspect]
     Indication: CARDIAC FAILURE
     Dosage: CODE NOT BROKEN
     Route: 048
     Dates: start: 20091209, end: 20100303
  13. COMPARATOR ENALAPRIL [Suspect]
     Indication: CARDIAC FAILURE
  14. BISOPROLOL FUMARATE [Concomitant]
     Indication: CARDIAC FAILURE
     Dosage: UNK
  15. PERINDOPRIL [Concomitant]
     Indication: CARDIAC FAILURE
  16. NSA [Concomitant]

REACTIONS (11)
  - CARDIAC FAILURE [None]
  - TACHYCARDIA [None]
  - DIZZINESS [None]
  - CHEST PAIN [None]
  - PULMONARY OEDEMA [None]
  - ACUTE MYOCARDIAL INFARCTION [None]
  - HYPOTENSION [None]
  - ASTHENIA [None]
  - LOWER RESPIRATORY TRACT INFECTION [None]
  - DISEASE PROGRESSION [None]
  - DYSPNOEA [None]
